FAERS Safety Report 4431134-3 (Version None)
Quarter: 2004Q3

REPORT INFORMATION
  Report Type: 
  Country: None (occurrence: None)
  Receive Date: 20040818
  Receipt Date: 20040804
  Transmission Date: 20050211
  Serious: Yes (Hospitalization)
  Sender: FDA-Public Use
  Company Number: FLUV00304002536

PATIENT
  Age: 39 Year
  Sex: Male
  Weight: 89 kg

DRUGS (16)
  1. LUVOX [Suspect]
     Dosage: 75 MG DAILY PO, 225 MG DAILY PO
     Route: 048
     Dates: start: 20030827, end: 20030902
  2. LUVOX [Suspect]
     Dosage: 75 MG DAILY PO, 225 MG DAILY PO
     Route: 048
     Dates: start: 20030910, end: 20040724
  3. ANAFRANIL [Concomitant]
     Indication: CHEMICAL POISONING
     Dosage: 105 MG DAILY PO, 150 MG DAILY PO
     Route: 048
     Dates: start: 20040218, end: 20040302
  4. ANAFRANIL [Concomitant]
     Indication: DEPRESSION
     Dosage: 105 MG DAILY PO, 150 MG DAILY PO
     Route: 048
     Dates: start: 20040218, end: 20040302
  5. ANAFRANIL [Concomitant]
     Indication: CHEMICAL POISONING
     Dosage: 105 MG DAILY PO, 150 MG DAILY PO
     Route: 048
     Dates: start: 20040303, end: 20040724
  6. ANAFRANIL [Concomitant]
     Indication: DEPRESSION
     Dosage: 105 MG DAILY PO, 150 MG DAILY PO
     Route: 048
     Dates: start: 20040303, end: 20040724
  7. RISPERDAL [Suspect]
     Indication: CHEMICAL POISONING
     Dosage: 4 MG DAILY PO
     Route: 048
     Dates: start: 20040218, end: 20040724
  8. RISPERDAL [Suspect]
     Indication: DEPRESSION
     Dosage: 4 MG DAILY PO
     Route: 048
     Dates: start: 20040218, end: 20040724
  9. CHLORPROMAZINE HCL [Suspect]
     Indication: CHEMICAL POISONING
     Dosage: 12.5 MG DAILY PO
     Route: 048
     Dates: start: 20030801, end: 20040724
  10. CHLORPROMAZINE HCL [Suspect]
     Indication: DEPRESSION
     Dosage: 12.5 MG DAILY PO
     Route: 048
     Dates: start: 20030801, end: 20040724
  11. ZOLPIDEM TARTRATE [Concomitant]
  12. ROHYPNOL (FLUNITRAZEPAM) [Concomitant]
  13. DEPAS (ETIZOLAM) [Concomitant]
  14. AKINETON (DIPERIDEN HYDROCHLORIDE) [Concomitant]
  15. GLYBURIDE [Concomitant]
  16. BASEN (VOGLIBOSE) [Concomitant]

REACTIONS (19)
  - ALANINE AMINOTRANSFERASE INCREASED [None]
  - ALBUMIN GLOBULIN RATIO ABNORMAL [None]
  - ASPARTATE AMINOTRANSFERASE INCREASED [None]
  - BLOOD ALKALINE PHOSPHATASE INCREASED [None]
  - BLOOD CHLORIDE DECREASED [None]
  - BLOOD CREATINE PHOSPHOKINASE INCREASED [None]
  - BLOOD LACTATE DEHYDROGENASE INCREASED [None]
  - BLOOD POTASSIUM DECREASED [None]
  - C-REACTIVE PROTEIN INCREASED [None]
  - COLD SWEAT [None]
  - ERYTHEMA [None]
  - HAEMATOCRIT DECREASED [None]
  - HEART RATE INCREASED [None]
  - HYPERVENTILATION [None]
  - HYPOAESTHESIA [None]
  - NEUROLEPTIC MALIGNANT SYNDROME [None]
  - PALPITATIONS [None]
  - PLATELET COUNT DECREASED [None]
  - WHITE BLOOD CELL COUNT INCREASED [None]
